FAERS Safety Report 16127171 (Version 1)
Quarter: 2019Q2

REPORT INFORMATION
  Report Type: Spontaneous
  Country: US (occurrence: US)
  Receive Date: 20190327
  Receipt Date: 20190327
  Transmission Date: 20190711
  Serious: Yes (Hospitalization)
  Sender: FDA-Public Use
  Company Number: None

PATIENT
  Age: 37 Year
  Sex: Female

DRUGS (13)
  1. BACLOFEN. [Concomitant]
     Active Substance: BACLOFEN
  2. ALPRAZOLAM. [Concomitant]
     Active Substance: ALPRAZOLAM
  3. SERTRALINE [Concomitant]
     Active Substance: SERTRALINE HYDROCHLORIDE
  4. HUMIRA [Suspect]
     Active Substance: ADALIMUMAB
     Indication: RHEUMATOID ARTHRITIS
     Dosage: ?          OTHER FREQUENCY:EVERY WEEK;?
     Route: 058
     Dates: start: 20180309
  5. TIZANIDINE. [Concomitant]
     Active Substance: TIZANIDINE
  6. ONDANSETRON [Concomitant]
     Active Substance: ONDANSETRON
  7. NITROFUR MAC [Concomitant]
     Active Substance: NITROFURANTOIN
  8. BUPROPN [Concomitant]
  9. PANTOPRAZOLE [Concomitant]
     Active Substance: PANTOPRAZOLE
  10. METHYLPRED [Concomitant]
     Active Substance: METHYLPREDNISOLONE
  11. ESOMEPRA MAG [Concomitant]
  12. AZATHIOPRINE. [Concomitant]
     Active Substance: AZATHIOPRINE
  13. DULOXETINE. [Concomitant]
     Active Substance: DULOXETINE

REACTIONS (4)
  - Condition aggravated [None]
  - Therapy cessation [None]
  - Loss of personal independence in daily activities [None]
  - Arthralgia [None]

NARRATIVE: CASE EVENT DATE: 20190226
